FAERS Safety Report 18863998 (Version 1)
Quarter: 2021Q1

REPORT INFORMATION
  Report Type: Other
  Country: US (occurrence: US)
  Receive Date: 20210209
  Receipt Date: 20210209
  Transmission Date: 20210420
  Serious: Yes (Other)
  Sender: FDA-Public Use
  Company Number: US-VISTA PHARMACEUTICALS INC.-2106515

PATIENT

DRUGS (1)
  1. SULFAMETHOXAZOLE AND TRIMETHOPRIM [Suspect]
     Active Substance: SULFAMETHOXAZOLE\TRIMETHOPRIM
     Indication: SKIN INFECTION
     Route: 065

REACTIONS (5)
  - Acute lung injury [Unknown]
  - Pulmonary alveolar haemorrhage [Unknown]
  - Respiratory failure [Unknown]
  - Toxicity to various agents [Unknown]
  - Pneumomediastinum [Unknown]
